FAERS Safety Report 5450156-7 (Version None)
Quarter: 2007Q3

REPORT INFORMATION
  Report Type: 
  Country: None (occurrence: None)
  Receive Date: 20070912
  Receipt Date: 20070831
  Transmission Date: 20080115
  Serious: Yes (Other)
  Sender: FDA-Public Use
  Company Number: B0486579A

PATIENT
  Age: 81 Year
  Sex: Male
  Weight: 108.5 kg

DRUGS (7)
  1. ROSIGLITAZONE [Suspect]
     Dates: start: 20051116, end: 20070612
  2. ASPIRIN [Concomitant]
     Route: 048
  3. BENDROFLUAZIDE [Concomitant]
     Route: 048
  4. DOXAZOSIN MESYLATE [Concomitant]
     Route: 048
  5. EZETROL [Concomitant]
     Route: 048
  6. FUROSEMIDE [Concomitant]
     Route: 048
  7. SIMVASTATIN [Concomitant]
     Route: 048

REACTIONS (3)
  - CARDIAC FAILURE [None]
  - DYSPNOEA [None]
  - OEDEMA PERIPHERAL [None]
